FAERS Safety Report 18881277 (Version 1)
Quarter: 2021Q1

REPORT INFORMATION
  Report Type: Spontaneous
  Country: ES (occurrence: ES)
  Receive Date: 20210212
  Receipt Date: 20210212
  Transmission Date: 20210420
  Serious: Yes (Other)
  Sender: FDA-Public Use
  Company Number: ES-SUN PHARMACEUTICAL INDUSTRIES LTD-2021RR-280623

PATIENT
  Age: 79 Year
  Sex: Male

DRUGS (10)
  1. LORMETAZEPAM NORMON 2 MG  COMPRIMIDOS EFG, 20 COMPRIMIDOS [Concomitant]
     Indication: RECTAL CANCER
     Dosage: 2 MILLIGRAM, QD
     Route: 048
     Dates: start: 20201104
  2. TRESIBA 100 UNIDADES/ML SOLUCION INYECTABLE EN PLUMA PRECARGADA, 5 ... [Concomitant]
     Indication: TYPE 1 DIABETES MELLITUS
     Dosage: 40 INTERNATIONAL UNIT, QD
     Route: 058
     Dates: start: 20161104
  3. AMLODIPINO STADA 10 MG COMPRIMIDOS EFG , 30 COMPRIMIDOS [Concomitant]
     Indication: HYPERTENSION
     Dosage: 10 MILLIGRAM, QD
     Route: 048
     Dates: start: 20201021
  4. OPTOVITE B12 1.000 MICROGRAMOS SOLUCION INYECTABLE , 5 AMPOLLAS DE ... [Concomitant]
     Indication: VITAMIN B COMPLEX DEFICIENCY
     Dosage: 1 MILLIGRAM, QD
     Route: 030
     Dates: start: 20200725
  5. SERTRALINE [Suspect]
     Active Substance: SERTRALINE HYDROCHLORIDE
     Indication: DEPRESSION
     Dosage: 1 DOSAGE FORM, QD
     Route: 048
     Dates: start: 20201201, end: 20210113
  6. FERO?GRADUMET 105 MG COMPRIMIDOS DE LIBERACION PROLONGADA., 30 COMP... [Concomitant]
     Indication: PERNICIOUS ANAEMIA
     Dosage: 105 MILLIGRAM, QD
     Route: 048
     Dates: start: 20201126
  7. TORASEMIDA CINFA 5 MG COMPRIMIDOS EFG, 30 COMPRIMIDOS [Concomitant]
     Indication: CARDIAC FAILURE
     Dosage: 5 MILLIGRAM, QD
     Route: 048
     Dates: start: 20090715
  8. ATORVASTATINA STADA 20 MG COMPRIMIDOS RECUBIERTOS CON PELICULA EFG ... [Concomitant]
     Indication: TYPE IIA HYPERLIPIDAEMIA
     Dosage: 20 MILLIGRAM, QD
     Route: 048
     Dates: start: 20161103
  9. NOVORAPID FLEXPEN 100 U/ML SOLUCION INYECTABLE EN UNA PLUMA PRECARG... [Concomitant]
     Indication: TYPE 1 DIABETES MELLITUS
     Dosage: 15 INTERNATIONAL UNIT, QD
     Route: 058
     Dates: start: 20200725
  10. IRBESARTAN ALTER 300 MG COMPRIMIDOS RECUBIERTOS CON PELICULA EFG, 2... [Concomitant]
     Indication: HYPERTENSION
     Dosage: 300 MILLIGRAM, QD
     Route: 048
     Dates: start: 20120419

REACTIONS (2)
  - Dizziness [Recovering/Resolving]
  - Balance disorder [Recovering/Resolving]

NARRATIVE: CASE EVENT DATE: 20201214
